FAERS Safety Report 16351193 (Version 1)
Quarter: 2019Q2

REPORT INFORMATION
  Report Type: Spontaneous
  Country: US (occurrence: US)
  Receive Date: 20190524
  Receipt Date: 20190524
  Transmission Date: 20190711
  Serious: Yes (Hospitalization, Other)
  Sender: FDA-Public Use
  Company Number: US-JNJFOC-20190524218

PATIENT
  Sex: Female

DRUGS (1)
  1. JOHNSONS BABY BABY POWDER UNSPECIFIED [ZINC OXIDE] [Suspect]
     Active Substance: ZINC OXIDE
     Indication: PRODUCT USED FOR UNKNOWN INDICATION
     Route: 061

REACTIONS (2)
  - Ovarian cancer [Unknown]
  - Infertility [Unknown]
